FAERS Safety Report 24032143 (Version 2)
Quarter: 2024Q3

REPORT INFORMATION
  Report Type: Spontaneous
  Country: US (occurrence: US)
  Receive Date: 20240630
  Receipt Date: 20240828
  Transmission Date: 20241017
  Serious: No
  Sender: BAYER
  Company Number: US-BAYER-2024A091022

PATIENT
  Sex: Male

DRUGS (5)
  1. ASTEPRO [Suspect]
     Active Substance: AZELASTINE HYDROCHLORIDE
     Dosage: 2 SPRAYS IN EACH NOSESTRILL
     Route: 045
     Dates: start: 20240221
  2. NEXIUM [Concomitant]
     Active Substance: ESOMEPRAZOLE MAGNESIUM
  3. LOSARTAN [Concomitant]
     Active Substance: LOSARTAN\LOSARTAN POTASSIUM
  4. POTASSIUM CITRATE [Concomitant]
     Active Substance: POTASSIUM CITRATE
  5. CIALIS [Concomitant]
     Active Substance: TADALAFIL

REACTIONS (3)
  - Application site pain [Not Recovered/Not Resolved]
  - Anosmia [Not Recovered/Not Resolved]
  - Product expiration date issue [None]

NARRATIVE: CASE EVENT DATE: 20240222
